FAERS Safety Report 6515793-7 (Version None)
Quarter: 2009Q4

REPORT INFORMATION
  Report Type: 
  Country: None (occurrence: None)
  Receive Date: 20091223
  Receipt Date: 20091209
  Transmission Date: 20100525
  Serious: Yes (Hospitalization, Other)
  Sender: FDA-Public Use
  Company Number: PHHY2009DE57332

PATIENT
  Age: 22 Year
  Sex: Female
  Weight: 67 kg

DRUGS (1)
  1. METOPROLOL TARTRATE [Suspect]
     Indication: HYPERTENSION
     Dosage: 100 MG, BID

REACTIONS (26)
  - AGITATION [None]
  - ANAEMIA [None]
  - ANTIPHOSPHOLIPID SYNDROME [None]
  - APHASIA [None]
  - BLOOD PRESSURE INADEQUATELY CONTROLLED [None]
  - BRAIN INJURY [None]
  - CARDIAC DISORDER [None]
  - CENTRAL NERVOUS SYSTEM LESION [None]
  - CHOLELITHIASIS [None]
  - ECCHYMOSIS [None]
  - ERYTHEMA [None]
  - GENERAL PHYSICAL HEALTH DETERIORATION [None]
  - HEMIPARESIS [None]
  - MENTAL DISORDER [None]
  - MESANGIOPROLIFERATIVE GLOMERULONEPHRITIS [None]
  - MITRAL VALVE INCOMPETENCE [None]
  - PARAESTHESIA [None]
  - PERICARDIAL EFFUSION [None]
  - PLEURAL EFFUSION [None]
  - POLYSEROSITIS [None]
  - PULMONARY OEDEMA [None]
  - RENAL IMPAIRMENT [None]
  - SPEECH DISORDER [None]
  - SYSTEMIC LUPUS ERYTHEMATOSUS [None]
  - THROMBOCYTOPENIA [None]
  - THROMBOTIC MICROANGIOPATHY [None]
